FAERS Safety Report 6671233-9 (Version None)
Quarter: 2010Q2

REPORT INFORMATION
  Report Type: 
  Country: None (occurrence: None)
  Receive Date: 20100407
  Receipt Date: 20100325
  Transmission Date: 20101027
  Serious: Yes (Life-Threatening, Hospitalization)
  Sender: FDA-Public Use
  Company Number: CA-AMGEN-QUU402120

PATIENT
  Sex: Male

DRUGS (5)
  1. ENBREL [Suspect]
     Indication: PSORIATIC ARTHROPATHY
     Dates: start: 20100223
  2. AMLODIPINE [Concomitant]
  3. ESOMEPRAZOLE [Concomitant]
  4. NITROGLYCERIN [Concomitant]
  5. SIMVASTATIN [Concomitant]

REACTIONS (3)
  - GLOMERULONEPHRITIS PROLIFERATIVE [None]
  - MALIGNANT HYPERTENSION [None]
  - POST PROCEDURAL HAEMATOMA [None]
